FAERS Safety Report 11616735 (Version 1)
Quarter: 2015Q4

REPORT INFORMATION
  Report Type: Spontaneous
  Country: US (occurrence: US)
  Receive Date: 20151009
  Receipt Date: 20151009
  Transmission Date: 20160304
  Serious: No
  Sender: FDA-Public Use
  Company Number: US-009507513-1510USA001739

PATIENT
  Age: 69 Year
  Sex: Male

DRUGS (1)
  1. MIRTAZAPINE. [Suspect]
     Active Substance: MIRTAZAPINE
     Route: 048

REACTIONS (3)
  - Sleep disorder [Recovered/Resolved]
  - Malaise [Recovered/Resolved]
  - Heart rate increased [Recovered/Resolved]
